FAERS Safety Report 8696406 (Version 3)
Quarter: 2012Q4

REPORT INFORMATION
  Report Type: 
  Country: JP (occurrence: JP)
  Receive Date: 20120801
  Receipt Date: 20120829
  Transmission Date: 20130627
  Serious: Yes (Hospitalization, Other)
  Sender: FDA-Public Use
  Company Number: PHHY2012JP064652

PATIENT
  Age: 64 Year
  Sex: Male

DRUGS (5)
  1. IMATINIB [Suspect]
     Indication: CHRONIC MYELOID LEUKAEMIA
     Dosage: between 100 and 400 mg daily
     Route: 048
     Dates: start: 200703
  2. IMATINIB [Suspect]
     Route: 048
  3. IMATINIB [Suspect]
     Dosage: UNK UKN, UNK
  4. IMATINIB [Suspect]
     Dosage: UNK UKN, UNK
     Dates: start: 200909, end: 201006
  5. DASATINIB [Suspect]
     Indication: CHRONIC MYELOID LEUKAEMIA
     Dosage: UNK UKN, UNK

REACTIONS (4)
  - Blast cell count increased [Unknown]
  - Chronic myeloid leukaemia [Unknown]
  - Myelodysplastic syndrome [Not Recovered/Not Resolved]
  - Bone marrow failure [Unknown]
